FAERS Safety Report 25823905 (Version 5)
Quarter: 2025Q4

REPORT INFORMATION
  Report Type: Report from Study
  Country: US (occurrence: US)
  Receive Date: 20250919
  Receipt Date: 20251205
  Transmission Date: 20260117
  Serious: Yes (Death, Hospitalization, Other)
  Sender: OTSUKA
  Company Number: US-MMM-Otsuka-QC2E39HU

PATIENT
  Age: 77 Year
  Sex: Male

DRUGS (18)
  1. BREXPIPRAZOLE [Suspect]
     Active Substance: BREXPIPRAZOLE
     Indication: Agitation
     Dosage: 2 MG, QD (STARTED APPROXIMATELY 12 WEEKS AGO)
     Dates: start: 202506
  2. BREXPIPRAZOLE [Suspect]
     Active Substance: BREXPIPRAZOLE
     Indication: Dementia Alzheimer^s type
  3. METOPROLOL SUCCINATE [Concomitant]
     Active Substance: METOPROLOL SUCCINATE
     Indication: Product used for unknown indication
     Dosage: 25 MG, QD (1 TABLET WITH FOOD)
  4. ATORVASTATIN [Concomitant]
     Active Substance: ATORVASTATIN
     Indication: Product used for unknown indication
     Dosage: 20 MG
     Route: 065
  5. SERTRALINE [Concomitant]
     Active Substance: SERTRALINE HYDROCHLORIDE
     Indication: Product used for unknown indication
     Dosage: 100 MG, DAILY (1 TABLET)
     Dates: start: 202505
  6. NAMENDA [Concomitant]
     Active Substance: MEMANTINE HYDROCHLORIDE
     Indication: Dementia
     Dosage: 1 DF, BID
     Route: 065
     Dates: start: 202506
  7. NAMENDA [Concomitant]
     Active Substance: MEMANTINE HYDROCHLORIDE
     Indication: Abnormal behaviour
  8. TOPROL XL [Concomitant]
     Active Substance: METOPROLOL SUCCINATE
     Indication: Hypertension
     Dosage: 1 DF, DAILY (TOPROL XL 25MG)
     Route: 065
     Dates: start: 2019
  9. Quc?apinei Fumarate [Concomitant]
     Indication: Product used for unknown indication
     Dosage: UNK, BID (1 TABLET IN MORNING AND 2 TABLET IN AT BEDTIME)
     Route: 065
  10. LIPITOR [Concomitant]
     Active Substance: ATORVASTATIN CALCIUM
     Indication: Hyperlipidaemia
     Dosage: 1 DF, QD (20 MG)
     Dates: start: 2022
  11. MELATONIN [Concomitant]
     Active Substance: MELATONIN
     Indication: Dementia
     Dosage: 1 DF, QD (MELATONIN 3MG) AT BEDTIME
     Route: 065
  12. MELATONIN [Concomitant]
     Active Substance: MELATONIN
     Indication: Abnormal behaviour
  13. ASPIRIN [Concomitant]
     Active Substance: ASPIRIN
     Indication: Product used for unknown indication
     Dosage: 1 DF, DAILY (ASPIRIN 325MG)
     Route: 065
  14. AZELASTINE [Concomitant]
     Active Substance: AZELASTINE
     Indication: Product used for unknown indication
     Dosage: 1 GTT, BID, OCULUS UTERQUE (AZELASTINE HCL 0.05 PERCENT DROP))
     Route: 065
  15. Sor [Concomitant]
     Indication: Dementia
     Dosage: UNK, BID
     Route: 065
  16. Sor [Concomitant]
     Indication: Abnormal behaviour
  17. ZOLOFT [Concomitant]
     Active Substance: SERTRALINE HYDROCHLORIDE
     Indication: Dementia
     Dosage: UNK
     Route: 065
  18. ZOLOFT [Concomitant]
     Active Substance: SERTRALINE HYDROCHLORIDE
     Indication: Abnormal behaviour

REACTIONS (7)
  - Cerebral haemorrhage [Fatal]
  - Cardiac arrest [Fatal]
  - Craniofacial injury [Fatal]
  - Fall [Fatal]
  - Craniofacial fracture [Unknown]
  - Gait disturbance [Unknown]
  - Drug ineffective [Unknown]

NARRATIVE: CASE EVENT DATE: 20250911
